FAERS Safety Report 22165364 (Version 1)
Quarter: 2023Q2

REPORT INFORMATION
  Report Type: Spontaneous
  Country: US (occurrence: US)
  Receive Date: 20230403
  Receipt Date: 20230403
  Transmission Date: 20230721
  Serious: No
  Sender: FDA-Public Use
  Company Number: US-JNJFOC-20230369502

PATIENT
  Age: 1 Decade
  Sex: Male

DRUGS (1)
  1. RISPERDAL [Suspect]
     Active Substance: RISPERIDONE
     Indication: Product used for unknown indication
     Dosage: 0.5 MG, ONE AND HALF
     Route: 048
     Dates: end: 2006

REACTIONS (2)
  - Aggression [Unknown]
  - Off label use [Unknown]

NARRATIVE: CASE EVENT DATE: 20040101
